FAERS Safety Report 10275871 (Version 2)
Quarter: 2014Q3

REPORT INFORMATION
  Report Type: Spontaneous
  Country: US (occurrence: US)
  Receive Date: 20140703
  Receipt Date: 20140807
  Transmission Date: 20150326
  Serious: No
  Sender: FDA-Public Use
  Company Number: US-PFIZER INC-2014181299

PATIENT
  Age: 60 Year
  Sex: Female
  Weight: 111.56 kg

DRUGS (8)
  1. PRAVASTATIN [Concomitant]
     Active Substance: PRAVASTATIN\PRAVASTATIN SODIUM
     Indication: BLOOD CHOLESTEROL INCREASED
     Dosage: 40 MG, 1X/DAY
  2. LYRICA [Suspect]
     Active Substance: PREGABALIN
     Indication: DIABETIC NEUROPATHY
     Dosage: 75 MG, 1X/DAY
     Route: 048
     Dates: start: 201308, end: 201311
  3. LYRICA [Suspect]
     Active Substance: PREGABALIN
     Dosage: 75 MG, 2X/DAY (BY TAKING THE SECOND DOSE OF PREGABALIN 75MG AT NIGHT)
     Route: 048
     Dates: start: 201311, end: 20140518
  4. LYRICA [Suspect]
     Active Substance: PREGABALIN
     Dosage: 225 MG, (75MG IN THE MORNING AND 150MG AT NIGHT)
     Route: 048
     Dates: start: 20140519
  5. ASPIRIN. [Concomitant]
     Active Substance: ASPIRIN
     Indication: ARTHRALGIA
     Dosage: 325 MG, 1X/DAY
  6. METFORMIN [Concomitant]
     Active Substance: METFORMIN HYDROCHLORIDE
     Indication: DIABETES MELLITUS
     Dosage: 500 MG, 1X/DAY
  7. HYDROCHLOROTHIAZIDE. [Concomitant]
     Active Substance: HYDROCHLOROTHIAZIDE
     Dosage: UNK, 1X/DAY (AT NIGHT)
  8. LOSARTAN [Concomitant]
     Active Substance: LOSARTAN
     Indication: HYPERTENSION
     Dosage: 100 MG, 1X/DAY

REACTIONS (6)
  - Insomnia [Unknown]
  - Pain in extremity [Unknown]
  - Dysstasia [Unknown]
  - Pain [Unknown]
  - Malaise [Unknown]
  - Drug effect incomplete [Unknown]

NARRATIVE: CASE EVENT DATE: 2013
